FAERS Safety Report 10019990 (Version 1)
Quarter: 2014Q1

REPORT INFORMATION
  Report Type: Other
  Country: AU (occurrence: AU)
  Receive Date: 20140318
  Receipt Date: 20140318
  Transmission Date: 20141002
  Serious: Yes (Hospitalization)
  Sender: FDA-Public Use
  Company Number: AU-ACORDA-ACO_102427_2014

PATIENT
  Age: 55 Year
  Sex: Female

DRUGS (5)
  1. FAMPYRA [Suspect]
     Indication: MULTIPLE SCLEROSIS
     Dosage: 10 MG, BID
     Route: 048
  2. DIMETHYL FUMARATE [Concomitant]
     Indication: MULTIPLE SCLEROSIS
     Dosage: UNK
     Route: 065
  3. CRESTOR [Concomitant]
     Indication: BLOOD CHOLESTEROL INCREASED
     Dosage: UNK
     Route: 065
  4. DITROPAN [Concomitant]
     Indication: BLADDER DISORDER
     Dosage: UNK
     Route: 065
  5. HIPREX [Concomitant]
     Indication: PROPHYLAXIS
     Dosage: UNK
     Route: 065

REACTIONS (2)
  - Influenza [Recovered/Resolved]
  - Automatic bladder [None]
